FAERS Safety Report 7560581-6 (Version None)
Quarter: 2011Q2

REPORT INFORMATION
  Report Type: 
  Country: None (occurrence: None)
  Receive Date: 20110621
  Receipt Date: 20100517
  Transmission Date: 20111010
  Serious: No
  Sender: FDA-Public Use
  Company Number: US-ASTRAZENECA-2010SE22599

PATIENT

DRUGS (3)
  1. ENTOCORT EC [Suspect]
     Indication: COLITIS COLLAGENOUS
     Route: 048
  2. ENTOCORT EC [Suspect]
     Route: 048
  3. ENTOCORT EC [Suspect]
     Route: 048

REACTIONS (2)
  - DRUG DOSE OMISSION [None]
  - DISEASE RECURRENCE [None]
